FAERS Safety Report 16124662 (Version 2)
Quarter: 2019Q2

REPORT INFORMATION
  Report Type: Spontaneous
  Country: US (occurrence: US)
  Receive Date: 20190327
  Receipt Date: 20190415
  Transmission Date: 20190711
  Serious: Yes (Other)
  Sender: FDA-Public Use
  Company Number: US-PFIZER INC-2019123193

PATIENT
  Age: 56 Year
  Sex: Female
  Weight: 90.72 kg

DRUGS (4)
  1. LYRICA [Suspect]
     Active Substance: PREGABALIN
     Indication: FIBROMYALGIA
  2. LYRICA [Suspect]
     Active Substance: PREGABALIN
     Indication: NERVE INJURY
     Dosage: 50 MG, 1X/DAY (NIGHTLY)
     Route: 048
  3. LYRICA [Suspect]
     Active Substance: PREGABALIN
     Indication: RADICULOPATHY
     Dosage: 50 MG, 2X/DAY
     Route: 048
  4. LYRICA [Suspect]
     Active Substance: PREGABALIN
     Indication: NEUROPATHY PERIPHERAL
     Dosage: 100 MG, 2X/DAY
     Route: 048

REACTIONS (14)
  - Fluid retention [Unknown]
  - Back disorder [Unknown]
  - Oedema [Unknown]
  - Headache [Unknown]
  - Speech disorder [Unknown]
  - Intentional product misuse [Unknown]
  - Head discomfort [Not Recovered/Not Resolved]
  - Vision blurred [Unknown]
  - Weight increased [Unknown]
  - Swelling [Unknown]
  - Dyskinesia [Unknown]
  - Weight decreased [Unknown]
  - Pulmonary mass [Unknown]
  - Seizure [Unknown]

NARRATIVE: CASE EVENT DATE: 201903
